FAERS Safety Report 8249254-4 (Version None)
Quarter: 2012Q1

REPORT INFORMATION
  Report Type: 
  Country: None (occurrence: None)
  Receive Date: 20120321
  Receipt Date: 20120307
  Transmission Date: 20120608
  Serious: Yes (Other)
  Sender: FDA-Public Use
  Company Number: US-145288

PATIENT
  Sex: Male
  Weight: 86.4 kg

DRUGS (4)
  1. HEPAGAM B [Suspect]
     Indication: ANTIVIRAL PROPHYLAXIS
     Dosage: (37 ML TOTAL INTRAVENOUS, (80 ML TOTAL INTRAVENOUS , (15 ML TOTAL INTRAVENOUS)
     Route: 042
     Dates: start: 20120302, end: 20120302
  2. HEPAGAM B [Suspect]
     Indication: ANTIVIRAL PROPHYLAXIS
     Dosage: (37 ML TOTAL INTRAVENOUS, (80 ML TOTAL INTRAVENOUS , (15 ML TOTAL INTRAVENOUS)
     Route: 042
     Dates: start: 20120302, end: 20120302
  3. HEPAGAM B [Suspect]
     Indication: ANTIVIRAL PROPHYLAXIS
     Dosage: (37 ML TOTAL INTRAVENOUS, (80 ML TOTAL INTRAVENOUS , (15 ML TOTAL INTRAVENOUS)
     Route: 042
     Dates: start: 20120309, end: 20120309
  4. HEPAGAM B [Suspect]
     Indication: ANTIVIRAL PROPHYLAXIS
     Dosage: (37 ML TOTAL INTRAVENOUS, (80 ML TOTAL INTRAVENOUS , (15 ML TOTAL INTRAVENOUS)
     Route: 042
     Dates: start: 20120303, end: 20120303

REACTIONS (3)
  - RENAL FAILURE ACUTE [None]
  - HAEMODIALYSIS [None]
  - INCORRECT DOSE ADMINISTERED [None]
